FAERS Safety Report 12144350 (Version 1)
Quarter: 2016Q1

REPORT INFORMATION
  Report Type: Spontaneous
  Country: US (occurrence: US)
  Receive Date: 20160304
  Receipt Date: 20160304
  Transmission Date: 20160526
  Serious: Yes (Hospitalization)
  Sender: FDA-Public Use
  Company Number: US-SA-2016SA039804

PATIENT
  Age: 55 Year
  Sex: Female

DRUGS (5)
  1. ENBREL [Suspect]
     Active Substance: ETANERCEPT
     Indication: PSORIASIS
     Route: 058
     Dates: start: 201312, end: 20150719
  2. FISH OIL [Concomitant]
     Active Substance: FISH OIL
  3. ENBREL [Suspect]
     Active Substance: ETANERCEPT
     Indication: RHEUMATOID ARTHRITIS
     Route: 058
     Dates: start: 201312, end: 20150719
  4. CORTICOSTEROID NOS [Suspect]
     Active Substance: CORTICOSTEROID NOS
     Route: 065
  5. ARAVA [Suspect]
     Active Substance: LEFLUNOMIDE
     Route: 065

REACTIONS (1)
  - Streptococcal infection [Recovered/Resolved]

NARRATIVE: CASE EVENT DATE: 20150719
